FAERS Safety Report 20790903 (Version 1)
Quarter: 2022Q2

REPORT INFORMATION
  Report Type: Spontaneous
  Country: NL (occurrence: NL)
  Receive Date: 20220505
  Receipt Date: 20220505
  Transmission Date: 20220720
  Serious: Yes (Death, Other)
  Sender: FDA-Public Use
  Company Number: NL-AMGEN-NLDSP2022072167

PATIENT

DRUGS (4)
  1. ROMIPLOSTIM [Suspect]
     Active Substance: ROMIPLOSTIM
     Indication: Immune thrombocytopenia
     Route: 065
  2. ELASOMERAN [Concomitant]
     Active Substance: ELASOMERAN
  3. TOZINAMERAN [Concomitant]
     Active Substance: TOZINAMERAN
  4. ChAdOx1 nCoV-19 [Concomitant]

REACTIONS (10)
  - Oesophageal varices haemorrhage [Fatal]
  - Haematuria [Unknown]
  - Immune thrombocytopenia [Unknown]
  - Vitreous haemorrhage [Unknown]
  - Mucosal haemorrhage [Unknown]
  - Urogenital haemorrhage [Unknown]
  - Cerebellar haemorrhage [Unknown]
  - COVID-19 [Unknown]
  - Therapy non-responder [Unknown]
  - Therapy partial responder [Unknown]
